FAERS Safety Report 4682643-3 (Version None)
Quarter: 2005Q2

REPORT INFORMATION
  Report Type: 
  Country: None (occurrence: None)
  Receive Date: 20050606
  Receipt Date: 20041203
  Transmission Date: 20051028
  Serious: Yes (Other)
  Sender: FDA-Public Use
  Company Number: GB-GLAXOSMITHKLINE-B0359568A

PATIENT
  Sex: Male

DRUGS (2)
  1. PAROXETINE HCL [Suspect]
     Route: 065
     Dates: start: 20011001, end: 20030601
  2. FLUOXETINE [Concomitant]
     Route: 065
     Dates: start: 20030601, end: 20040501

REACTIONS (7)
  - AGGRESSION [None]
  - COMPLETED SUICIDE [None]
  - DRUG WITHDRAWAL SYNDROME [None]
  - HYPERHIDROSIS [None]
  - INCREASED APPETITE [None]
  - IRRITABILITY [None]
  - WEIGHT INCREASED [None]
